FAERS Safety Report 5255836-4 (Version None)
Quarter: 2007Q1

REPORT INFORMATION
  Report Type: 
  Country: None (occurrence: None)
  Receive Date: 20070301
  Receipt Date: 20060626
  Transmission Date: 20070707
  Serious: Yes (Life-Threatening)
  Sender: FDA-Public Use
  Company Number: DSA_29407_2007

PATIENT
  Age: 44 Year
  Sex: Male

DRUGS (1)
  1. DILTIAZEM [Suspect]
     Indication: ATRIAL FIBRILLATION
     Dosage: DF;

REACTIONS (5)
  - CARDIAC ARREST [None]
  - NODAL ARRHYTHMIA [None]
  - POST PROCEDURAL COMPLICATION [None]
  - TACHYCARDIA PAROXYSMAL [None]
  - VENTRICULAR FIBRILLATION [None]
